FAERS Safety Report 11583230 (Version 1)
Quarter: 2015Q4

REPORT INFORMATION
  Report Type: Spontaneous
  Country: US (occurrence: US)
  Receive Date: 20151001
  Receipt Date: 20151001
  Transmission Date: 20160304
  Serious: No
  Sender: FDA-Public Use
  Company Number: US-ROCHE-653861

PATIENT
  Sex: Male
  Weight: 116.6 kg

DRUGS (13)
  1. SORIATANE [Concomitant]
     Active Substance: ACITRETIN
     Dosage: DOSE: 25 MG EVERY DAY
     Route: 065
  2. CLOBETASOL [Concomitant]
     Active Substance: CLOBETASOL
     Dosage: ON HANDS
     Route: 065
  3. NIASPAN [Concomitant]
     Active Substance: NIACIN
     Dosage: FREQUENCY: 500 MG EVERY NIGHT (QHS)
     Route: 065
  4. RIBAVIRIN. [Suspect]
     Active Substance: RIBAVIRIN
     Indication: HEPATITIS C
     Route: 048
  5. BACLOFEN. [Concomitant]
     Active Substance: BACLOFEN
     Route: 065
  6. SIMVASTATIN. [Concomitant]
     Active Substance: SIMVASTATIN
     Dosage: FREQUENCY: EVERY NIGHT (QHS)
     Route: 065
  7. PEGASYS [Suspect]
     Active Substance: PEGINTERFERON ALFA-2A
     Indication: HEPATITIS C
     Dosage: FORM: PRE-FILLED SYRINGE
     Route: 058
  8. CEFLAX [Concomitant]
     Dosage: DOSE: 20 MG EVERY DAY
     Route: 065
  9. PRAZOSIN [Concomitant]
     Active Substance: PRAZOSIN
     Dosage: AT NIGHT
     Route: 065
  10. OMEPRAZOLE. [Concomitant]
     Active Substance: OMEPRAZOLE
     Dosage: DOSE: 20 MG EVERY DAY
     Route: 065
  11. SORIATANE [Concomitant]
     Active Substance: ACITRETIN
     Dosage: APPLIED ON HANDS
     Route: 065
  12. PHENERGAN [Suspect]
     Active Substance: PROMETHAZINE HYDROCHLORIDE
     Indication: HEPATITIS C
     Dosage: TAKEN AS NECESSARY
     Route: 048
  13. LIDOCAINE. [Concomitant]
     Active Substance: LIDOCAINE
     Dosage: FORM: JELLY?USED ON HANDS
     Route: 065

REACTIONS (5)
  - Headache [Not Recovered/Not Resolved]
  - Cerebral disorder [Not Recovered/Not Resolved]
  - Tooth infection [Recovered/Resolved]
  - Cold sweat [Not Recovered/Not Resolved]
  - Poor dental condition [Recovered/Resolved]
